FAERS Safety Report 5819303-9 (Version None)
Quarter: 2008Q3

REPORT INFORMATION
  Report Type: 
  Country: None (occurrence: None)
  Receive Date: 20080723
  Receipt Date: 20080711
  Transmission Date: 20090109
  Serious: No
  Sender: FDA-Public Use
  Company Number: US-MERCK-0807USA02955B1

PATIENT

DRUGS (4)
  1. SINGULAIR [Suspect]
     Route: 064
     Dates: start: 20020426
  2. ALBUTEROL [Concomitant]
     Route: 064
     Dates: start: 20020426, end: 20020528
  3. ALLEGRA [Concomitant]
     Route: 064
  4. SEREVENT [Concomitant]
     Route: 064

REACTIONS (4)
  - BLIGHTED OVUM [None]
  - DRUG EXPOSURE DURING PREGNANCY [None]
  - MATERNAL DRUGS AFFECTING FOETUS [None]
  - PREGNANCY [None]
